FAERS Safety Report 17173525 (Version 1)
Quarter: 2019Q4

REPORT INFORMATION
  Report Type: Spontaneous
  Country: US (occurrence: US)
  Receive Date: 20191218
  Receipt Date: 20191218
  Transmission Date: 20200122
  Serious: Yes (Hospitalization)
  Sender: FDA-Public Use
  Company Number: None

PATIENT
  Age: 58 Year
  Sex: Female
  Weight: 85.4 kg

DRUGS (1)
  1. KRATOM [Suspect]
     Active Substance: HERBALS\MITRAGYNINE
     Indication: INSOMNIA
     Dates: start: 20191110, end: 20191123

REACTIONS (2)
  - Toxicity to various agents [None]
  - Injury [None]

NARRATIVE: CASE EVENT DATE: 20191203
